FAERS Safety Report 4982801-4 (Version None)
Quarter: 2006Q2

REPORT INFORMATION
  Report Type: 
  Country: None (occurrence: None)
  Receive Date: 20060425
  Receipt Date: 20060418
  Transmission Date: 20061013
  Serious: Yes (Hospitalization)
  Sender: FDA-Public Use
  Company Number: US-MERCK-0604USA03219

PATIENT
  Age: 70 Year
  Sex: Female

DRUGS (6)
  1. ADALAT [Concomitant]
     Route: 048
  2. ROCORNAL [Concomitant]
     Route: 047
  3. FOSAMAX [Suspect]
     Indication: OSTEOPOROSIS
     Route: 048
     Dates: start: 20060101
  4. DIGOXIN [Concomitant]
     Route: 065
  5. WARFARIN POTASSIUM [Concomitant]
     Route: 048
  6. DIOVAN [Concomitant]
     Route: 048

REACTIONS (2)
  - GINGIVAL SWELLING [None]
  - RASH [None]
